FAERS Safety Report 6973263-6 (Version None)
Quarter: 2010Q3

REPORT INFORMATION
  Report Type: 
  Country: None (occurrence: None)
  Receive Date: 20100909
  Receipt Date: 20100901
  Transmission Date: 20110219
  Serious: Yes (Death)
  Sender: FDA-Public Use
  Company Number: US-GILEAD-2010-0028691

PATIENT
  Sex: Female
  Weight: 74.002 kg

DRUGS (14)
  1. LETAIRIS [Suspect]
     Indication: PULMONARY ARTERIAL HYPERTENSION
     Route: 048
     Dates: start: 20080731
  2. REVATIO [Concomitant]
  3. LASIX [Concomitant]
  4. METOPROLOL TARTRATE [Concomitant]
  5. NORVASC [Concomitant]
  6. MIRALAX [Concomitant]
  7. VICODIN [Concomitant]
  8. PREDNISONE [Concomitant]
  9. FOSAMAX [Concomitant]
  10. PROTONIX [Concomitant]
  11. CLONAZEPAM [Concomitant]
  12. METFORMIN [Concomitant]
  13. POTASSIUM CHLORIDE [Concomitant]
  14. ASPIRIN [Concomitant]

REACTIONS (1)
  - LUNG CANCER METASTATIC [None]
